FAERS Safety Report 6125216-8 (Version None)
Quarter: 2009Q1

REPORT INFORMATION
  Report Type: 
  Country: None (occurrence: None)
  Receive Date: 20090318
  Receipt Date: 20090306
  Transmission Date: 20090719
  Serious: Yes (Other)
  Sender: FDA-Public Use
  Company Number: 2009SP001683

PATIENT
  Age: 68 Year
  Sex: Female
  Weight: 51 kg

DRUGS (4)
  1. VIRAFERONPEG [Suspect]
     Indication: HEPATITIS C
     Dosage: 25.5 MCG; QW; SC
     Route: 058
     Dates: start: 20061130
  2. BLINDED PEGINTERFERON ALFA-2B (S-P) [Suspect]
     Indication: HEPATITIS C
     Dosage: 800 MG; QD; PO;  600 MG; QD; PO
     Route: 048
     Dates: start: 20061130, end: 20070904
  3. BLINDED PEGINTERFERON ALFA-2B (S-P) [Suspect]
     Indication: HEPATITIS C
     Dosage: 800 MG; QD; PO;  600 MG; QD; PO
     Route: 048
     Dates: start: 20071105, end: 20081223
  4. NAFTIDROFURYL (NAFTIDROFURYL) [Suspect]
     Indication: PERIPHERAL COLDNESS
     Dosage: 200 MG;TID
     Dates: start: 20081212

REACTIONS (1)
  - ASPARTATE AMINOTRANSFERASE INCREASED [None]
